FAERS Safety Report 7496503-6 (Version None)
Quarter: 2011Q2

REPORT INFORMATION
  Report Type: 
  Country: None (occurrence: None)
  Receive Date: 20110523
  Receipt Date: 20110516
  Transmission Date: 20111010
  Serious: Yes (Hospitalization)
  Sender: FDA-Public Use
  Company Number: GR-GILEAD-E2B_00001287

PATIENT
  Age: 80 Year
  Sex: Female

DRUGS (1)
  1. AMBRISENTAN [Suspect]
     Indication: PULMONARY HYPERTENSION
     Dosage: 5MG PER DAY
     Route: 048
     Dates: start: 20110426, end: 20110507

REACTIONS (4)
  - ANAEMIA [None]
  - DYSPNOEA [None]
  - TACHYCARDIA [None]
  - PYREXIA [None]
